FAERS Safety Report 25675333 (Version 1)
Quarter: 2025Q3

REPORT INFORMATION
  Report Type: Spontaneous
  Country: US (occurrence: US)
  Receive Date: 20250813
  Receipt Date: 20250813
  Transmission Date: 20251020
  Serious: Yes (Other)
  Sender: NAARI PHARMA
  Company Number: US-NAARI PTE LIMITED-2025NP000052

PATIENT
  Age: 34 Year
  Sex: Female

DRUGS (2)
  1. NORETHINDRONE [Suspect]
     Active Substance: NORETHINDRONE
     Indication: Pneumothorax
     Route: 048
  2. LEUPROLIDE [Suspect]
     Active Substance: LEUPROLIDE
     Indication: Pneumothorax
     Route: 065

REACTIONS (3)
  - Condition aggravated [Unknown]
  - Endometrial disorder [Unknown]
  - Off label use [Unknown]
